FAERS Safety Report 6384618-5 (Version None)
Quarter: 2009Q4

REPORT INFORMATION
  Report Type: 
  Country: None (occurrence: None)
  Receive Date: 20091001
  Receipt Date: 20090921
  Transmission Date: 20100525
  Serious: Yes (Other)
  Sender: FDA-Public Use
  Company Number: PHHY2009IE30937

PATIENT
  Sex: Female

DRUGS (5)
  1. CLOZARIL [Suspect]
     Indication: SCHIZOPHRENIA
     Dosage: 125 MG DAILY
     Route: 048
     Dates: start: 20060720
  2. ABILIFY [Concomitant]
  3. CIPRAMIL [Concomitant]
  4. ARIPIPRAZOLE [Concomitant]
     Indication: SCHIZOPHRENIA
     Dosage: 10 MG DAILY
     Route: 048
     Dates: start: 20090610, end: 20090806
  5. CITALOPRAM [Concomitant]
     Indication: ANXIETY
     Dosage: 20 MG DAILY
     Route: 048

REACTIONS (4)
  - BUNDLE BRANCH BLOCK RIGHT [None]
  - DIZZINESS [None]
  - TACHYCARDIA [None]
  - WEIGHT INCREASED [None]
